FAERS Safety Report 4672999-X (Version None)
Quarter: 2005Q2

REPORT INFORMATION
  Report Type: 
  Country: None (occurrence: None)
  Receive Date: 20050523
  Receipt Date: 20050511
  Transmission Date: 20051028
  Serious: Yes (Other)
  Sender: FDA-Public Use
  Company Number: 2005013383

PATIENT
  Age: 76 Year
  Sex: Female

DRUGS (3)
  1. BEXTRA [Suspect]
     Indication: INFLAMMATION
     Dosage: 40 MG (20 MG, 2 IN 1 D), ORAL
     Route: 048
     Dates: start: 20050112, end: 20050101
  2. BEXTRA [Suspect]
     Indication: PAIN IN EXTREMITY
     Dosage: 40 MG (20 MG, 2 IN 1 D), ORAL
     Route: 048
     Dates: start: 20050112, end: 20050101
  3. MIFLASONA (BECLOMETASONE DIPROPIONATE) [Concomitant]

REACTIONS (8)
  - AMNESIA [None]
  - BALANCE DISORDER [None]
  - BLINDNESS TRANSIENT [None]
  - CEREBROVASCULAR ACCIDENT [None]
  - CONFUSIONAL STATE [None]
  - HYPERTENSIVE CRISIS [None]
  - MEMORY IMPAIRMENT [None]
  - VOMITING [None]
